FAERS Safety Report 9302666 (Version 1)
Quarter: 2013Q2

REPORT INFORMATION
  Report Type: Spontaneous
  Country: CH (occurrence: None)
  Receive Date: 20130516
  Receipt Date: 20130516
  Transmission Date: 20140414
  Serious: Yes (Other)
  Sender: FDA-Public Use
  Company Number: 20130235

PATIENT
  Age: 34 Year
  Sex: Female
  Weight: 58 kg

DRUGS (3)
  1. VENOFER (IRON SUCROSE INJECTION-VIFOR) (IRON SUCROSE INJECTION) 20 MG/ML [Suspect]
     Dates: start: 20130408, end: 20130408
  2. TRANEXAMIC ACID [Concomitant]
  3. TRANEXAMIC ACID [Concomitant]

REACTIONS (2)
  - Dyspnoea [None]
  - Chest pain [None]
